FAERS Safety Report 21730772 (Version 3)
Quarter: 2023Q1

REPORT INFORMATION
  Report Type: Spontaneous
  Country: US (occurrence: US)
  Receive Date: 20221215
  Receipt Date: 20230121
  Transmission Date: 20230418
  Serious: No
  Sender: FDA-Public Use
  Company Number: US-AMGEN-USASP2022213815

PATIENT
  Age: 82 Year
  Sex: Female

DRUGS (4)
  1. KYPROLIS [Suspect]
     Active Substance: CARFILZOMIB
     Indication: Plasma cell myeloma
     Dosage: 124 MILLIGRAM
     Route: 065
  2. KYPROLIS [Suspect]
     Active Substance: CARFILZOMIB
     Dosage: 124 MILLIGRAM
     Route: 065
  3. KYPROLIS [Suspect]
     Active Substance: CARFILZOMIB
     Dosage: 60 MILLIGRAM
     Route: 065
  4. KYPROLIS [Suspect]
     Active Substance: CARFILZOMIB
     Dosage: 10 MILLIGRAM
     Route: 065

REACTIONS (3)
  - Blood pressure systolic abnormal [Unknown]
  - Off label use [Unknown]
  - Blood pressure systolic increased [Unknown]

NARRATIVE: CASE EVENT DATE: 20221201
